FAERS Safety Report 6576913-1 (Version None)
Quarter: 2010Q1

REPORT INFORMATION
  Report Type: 
  Country: None (occurrence: None)
  Receive Date: 20100210
  Receipt Date: 20100203
  Transmission Date: 20100710
  Serious: Yes (Other)
  Sender: FDA-Public Use
  Company Number: B0632190A

PATIENT
  Sex: Female

DRUGS (3)
  1. TYVERB [Suspect]
     Indication: BREAST CANCER
     Dosage: 1250U PER DAY
     Route: 065
     Dates: start: 20090811
  2. XELODA [Concomitant]
  3. IMODIUM [Concomitant]

REACTIONS (3)
  - CONTUSION [None]
  - DIARRHOEA [None]
  - MUCOSAL HAEMORRHAGE [None]
